FAERS Safety Report 5260976-X (Version None)
Quarter: 2007Q1

REPORT INFORMATION
  Report Type: 
  Country: None (occurrence: None)
  Receive Date: 20070309
  Receipt Date: 20070228
  Transmission Date: 20070707
  Serious: No
  Sender: FDA-Public Use
  Company Number: 2006UW08053

PATIENT
  Sex: Male
  Weight: 90.9 kg

DRUGS (4)
  1. SEROQUEL [Suspect]
     Indication: SCHIZOPHRENIA
     Dosage: 100 MG - 200 MG
     Route: 048
  2. SEROQUEL [Suspect]
     Indication: DEPRESSION
     Dosage: 100 MG - 200 MG
     Route: 048
  3. GEODON [Suspect]
  4. RISPERDAL [Suspect]

REACTIONS (1)
  - DIABETES MELLITUS [None]
